FAERS Safety Report 23275866 (Version 1)
Quarter: 2023Q4

REPORT INFORMATION
  Report Type: Report from Study
  Country: DE (occurrence: DE)
  Receive Date: 20231208
  Receipt Date: 20231208
  Transmission Date: 20240110
  Serious: Yes (Hospitalization, Other)
  Sender: FDA-Public Use
  Company Number: DE-002147023-NVSC2023DE239980

PATIENT
  Sex: Male
  Weight: 92 kg

DRUGS (3)
  1. MAYZENT [Suspect]
     Active Substance: SIPONIMOD
     Indication: Secondary progressive multiple sclerosis
     Dosage: 2 MG, QD
     Route: 048
     Dates: start: 20220307, end: 20220427
  2. MAYZENT [Suspect]
     Active Substance: SIPONIMOD
     Dosage: 2 MG (EVERY SECOND DAY), (REASON: JUST DOSAGE ADJUSTMENT)
     Route: 048
     Dates: start: 20220428, end: 20220626
  3. MAYZENT [Suspect]
     Active Substance: SIPONIMOD
     Dosage: 1 MG, QD (REASON: JUST DOSAGE ADJUSTMENT)
     Route: 048
     Dates: start: 20220627

REACTIONS (8)
  - COVID-19 [Recovered/Resolved]
  - Expanded disability status scale score increased [Recovered/Resolved]
  - Muscle spasticity [Unknown]
  - Paresis [Unknown]
  - Hypoaesthesia [Unknown]
  - Vision blurred [Unknown]
  - Nystagmus [Unknown]
  - Dysarthria [Unknown]

NARRATIVE: CASE EVENT DATE: 20220627
